FAERS Safety Report 4829734-1 (Version None)
Quarter: 2005Q4

REPORT INFORMATION
  Report Type: 
  Country: None (occurrence: None)
  Receive Date: 20051027
  Receipt Date: 20050314
  Transmission Date: 20060501
  Serious: Yes (Other)
  Sender: FDA-Public Use
  Company Number: HQWYE211217JUL04

PATIENT
  Sex: Female
  Weight: 68.1 kg

DRUGS (2)
  1. PREMARIN [Suspect]
  2. CENESTIN [Suspect]

REACTIONS (2)
  - BREAST CANCER [None]
  - FIBROMYALGIA [None]
